FAERS Safety Report 5529474-X (Version None)
Quarter: 2007Q4

REPORT INFORMATION
  Report Type: 
  Country: None (occurrence: None)
  Receive Date: 20071129
  Receipt Date: 20071115
  Transmission Date: 20080405
  Serious: Yes (Disabling, Other)
  Sender: FDA-Public Use
  Company Number: GB-RANBAXY-2007RR-11501

PATIENT

DRUGS (9)
  1. RANITIDINE 300 MG TABLETS [Suspect]
     Indication: GASTROOESOPHAGEAL REFLUX DISEASE
     Dosage: 300 MG, QD
     Route: 048
     Dates: start: 20070921, end: 20071016
  2. AMOXICILLIN [Concomitant]
     Dosage: 250 MG, TID
  3. CO-DYDRAMOL [Concomitant]
     Dosage: 2 DF, PRN
  4. DICLOFENAC SODIUM TABLETS 50MG [Concomitant]
     Dosage: 50 MG, PRN
  5. ELLESTE DUET [Concomitant]
  6. LANSOPRAZOLE 30 MG GASTRO-RESISTANT CAPSULES [Concomitant]
     Dosage: 30 MG, QD
     Route: 048
  7. OMEPRAZOLE [Concomitant]
     Indication: GASTROOESOPHAGEAL REFLUX DISEASE
     Dosage: 20 MG, QD
     Route: 048
  8. SUMATRIPTAN SUCCINATE [Concomitant]
     Dosage: 50 MG, PRN
     Route: 048
  9. ZOCOR [Concomitant]
     Dosage: 20 MG, QD

REACTIONS (4)
  - CHEST DISCOMFORT [None]
  - DEPRESSED MOOD [None]
  - DYSPNOEA [None]
  - FATIGUE [None]
